FAERS Safety Report 4944224-3 (Version None)
Quarter: 2006Q1

REPORT INFORMATION
  Report Type: 
  Country: None (occurrence: None)
  Receive Date: 20060315
  Receipt Date: 20060302
  Transmission Date: 20060701
  Serious: Yes (Other)
  Sender: FDA-Public Use
  Company Number: GB-JNJFOC-20060303162

PATIENT
  Age: 49 Year
  Sex: Female

DRUGS (7)
  1. TRAMADOL HCL [Suspect]
     Indication: MIGRAINE
     Route: 048
     Dates: start: 20060209, end: 20060212
  2. ASPIRIN [Concomitant]
     Indication: MYOCARDIAL ISCHAEMIA
     Route: 048
  3. ATENOLOL [Concomitant]
     Indication: MYOCARDIAL ISCHAEMIA
     Route: 048
  4. SIMVASTATIN [Concomitant]
     Indication: MYOCARDIAL ISCHAEMIA
     Route: 048
  5. ADALAT [Concomitant]
     Indication: MYOCARDIAL ISCHAEMIA
     Route: 048
  6. DIHYDROCODEINE [Concomitant]
     Indication: MIGRAINE
     Route: 065
  7. DOMPERIDONE [Concomitant]
     Route: 065

REACTIONS (1)
  - ANGINA PECTORIS [None]
